FAERS Safety Report 14652438 (Version 1)
Quarter: 2018Q1

REPORT INFORMATION
  Report Type: Spontaneous
  Country: US (occurrence: US)
  Receive Date: 20180318
  Receipt Date: 20180318
  Transmission Date: 20180509
  Serious: No
  Sender: FDA-Public Use
  Company Number: US-MYLANLABS-2018M1017095

PATIENT
  Age: 82 Year
  Sex: Male
  Weight: 86.17 kg

DRUGS (2)
  1. NEXIUM [Concomitant]
     Active Substance: ESOMEPRAZOLE MAGNESIUM
     Indication: GASTROOESOPHAGEAL REFLUX DISEASE
     Dosage: UNK
  2. EDLUAR [Suspect]
     Active Substance: ZOLPIDEM TARTRATE
     Indication: INSOMNIA
     Dosage: 10 MG, QOD, AS NEEDED
     Route: 060

REACTIONS (1)
  - Blood phosphorus increased [Unknown]

NARRATIVE: CASE EVENT DATE: 201801
